FAERS Safety Report 4449066-3 (Version None)
Quarter: 2004Q3

REPORT INFORMATION
  Report Type: 
  Country: None (occurrence: None)
  Receive Date: 20040909
  Receipt Date: 20040819
  Transmission Date: 20050211
  Serious: Yes (Death, Hospitalization, Other)
  Sender: FDA-Public Use
  Company Number: US_0408105109

PATIENT
  Sex: Female

DRUGS (4)
  1. FORTEO [Suspect]
     Indication: OSTEOPOROSIS
     Dates: start: 20030520
  2. DEPO-MEDROL [Concomitant]
  3. METHOTREXATE [Concomitant]
  4. PAIN MEDICINE [Concomitant]

REACTIONS (5)
  - BLOOD ALKALINE PHOSPHATASE INCREASED [None]
  - BLOOD CALCIUM INCREASED [None]
  - EJECTION FRACTION DECREASED [None]
  - HYPERPARATHYROIDISM [None]
  - TREATMENT NONCOMPLIANCE [None]
